FAERS Safety Report 6775005-6 (Version None)
Quarter: 2010Q2

REPORT INFORMATION
  Report Type: 
  Country: None (occurrence: None)
  Receive Date: 20100617
  Receipt Date: 20100610
  Transmission Date: 20101027
  Serious: Yes (Hospitalization)
  Sender: FDA-Public Use
  Company Number: A0864291A

PATIENT
  Age: 60 Year
  Sex: Male

DRUGS (3)
  1. ADVAIR DISKUS 100/50 [Suspect]
     Indication: ASTHMA
     Dosage: 1PUFF PER DAY
     Route: 055
     Dates: start: 20050101, end: 20090101
  2. BLOOD PRESSURE MEDICATION [Concomitant]
  3. PROVENTIL [Concomitant]

REACTIONS (3)
  - HAEMOPTYSIS [None]
  - LUNG NEOPLASM MALIGNANT [None]
  - PNEUMONECTOMY [None]
